FAERS Safety Report 7622057-7 (Version None)
Quarter: 2011Q3

REPORT INFORMATION
  Report Type: 
  Country: None (occurrence: None)
  Receive Date: 20110720
  Receipt Date: 20110322
  Transmission Date: 20111222
  Serious: Yes (Other)
  Sender: FDA-Public Use
  Company Number: US-BAYER-2010-004353

PATIENT
  Age: 16 Year
  Sex: Female
  Weight: 77.098 kg

DRUGS (10)
  1. YAZ [Suspect]
     Indication: PREMENSTRUAL SYNDROME
     Dosage: UNK
     Route: 048
     Dates: start: 20080501, end: 20090701
  2. TOPIRAMATE [Concomitant]
     Dosage: 50 MG, UNK
     Dates: start: 20090101
  3. FLUTICASONE PROPIONATE [Concomitant]
     Dosage: 50 ?G, UNK
     Dates: start: 20080101
  4. YASMIN [Suspect]
     Indication: PREMENSTRUAL SYNDROME
     Dosage: UNK
     Route: 048
     Dates: start: 20080501, end: 20090701
  5. YAZ [Suspect]
  6. DROSPIRENONE AND ETHINYL ESTRADIOL [Suspect]
     Dosage: UNK
     Route: 048
     Dates: start: 20080501, end: 20090701
  7. SEROQUEL [Concomitant]
     Dosage: 100 MG, UNK
     Dates: start: 20080101
  8. YASMIN [Suspect]
  9. LITHIUM CARBONATE [Concomitant]
     Dosage: 300 MG, UNK
     Dates: start: 20080101
  10. COLACE [Concomitant]

REACTIONS (11)
  - CONSTIPATION [None]
  - CHOLECYSTITIS [None]
  - ABDOMINAL PAIN UPPER [None]
  - MUSCLE SPASMS [None]
  - ANXIETY [None]
  - DIARRHOEA [None]
  - INJURY [None]
  - BILIARY DYSKINESIA [None]
  - PAIN [None]
  - STRESS [None]
  - DYSPEPSIA [None]
